FAERS Safety Report 10229916 (Version 1)
Quarter: 2014Q2

REPORT INFORMATION
  Report Type: Spontaneous
  Country: US (occurrence: None)
  Receive Date: 20140610
  Receipt Date: 20140610
  Transmission Date: 20141212
  Serious: No
  Sender: FDA-Public Use
  Company Number: None

PATIENT
  Age: 89 Year
  Sex: Female

DRUGS (1)
  1. LIPITOR [Suspect]

REACTIONS (14)
  - Muscular weakness [None]
  - Myalgia [None]
  - Polymyalgia rheumatica [None]
  - Atrial fibrillation [None]
  - Atrioventricular block complete [None]
  - Dysphagia [None]
  - Peripheral vascular disorder [None]
  - Hypothyroidism [None]
  - Fall [None]
  - Rhabdomyolysis [None]
  - Convulsion [None]
  - Pneumonia aspiration [None]
  - Cardiac failure congestive [None]
  - Activities of daily living impaired [None]
